FAERS Safety Report 7717395-3 (Version None)
Quarter: 2011Q3

REPORT INFORMATION
  Report Type: 
  Country: None (occurrence: None)
  Receive Date: 20110830
  Receipt Date: 20110816
  Transmission Date: 20111222
  Serious: No
  Sender: FDA-Public Use
  Company Number: US-B.I. PHARMACEUTICALS,INC./RIDGEFIELD-2011-BP-18515BP

PATIENT
  Age: 64 Year
  Sex: Male

DRUGS (5)
  1. PRADAXA [Suspect]
     Indication: ATRIAL FIBRILLATION
     Dosage: 300 MG
     Route: 048
     Dates: start: 20110601, end: 20110701
  2. DIGOXIN [Concomitant]
     Dosage: 250 MCG
     Route: 048
  3. DILTIAZEM [Concomitant]
     Dosage: 240 MG
     Route: 048
  4. LIPITOR [Concomitant]
     Dosage: 10 MG
     Route: 048
  5. NEXIUM [Concomitant]
     Dosage: 40 MG
     Route: 048

REACTIONS (7)
  - VOMITING [None]
  - GASTROOESOPHAGEAL REFLUX DISEASE [None]
  - ABDOMINAL DISCOMFORT [None]
  - DYSPEPSIA [None]
  - OROPHARYNGEAL PAIN [None]
  - NAUSEA [None]
  - COUGH [None]
